FAERS Safety Report 13401513 (Version 2)
Quarter: 2017Q4

REPORT INFORMATION
  Report Type: Spontaneous
  Country: CH (occurrence: CH)
  Receive Date: 20170404
  Receipt Date: 20171215
  Transmission Date: 20180320
  Serious: Yes (Death, Disabling, Other)
  Sender: FDA-Public Use
  Company Number: CH-PFIZER INC-2017138980

PATIENT
  Age: 51 Year
  Sex: Male

DRUGS (23)
  1. TEMESTA (LORAZEPAM) [Suspect]
     Active Substance: LORAZEPAM
     Dosage: 3.5 MG, DAILY (1MG MORNING-AND 2.5MG IN THE EVENING + 1MG 2X/DAY PRN)
     Route: 048
     Dates: start: 20170218
  2. ISENTRESS [Concomitant]
     Active Substance: RALTEGRAVIR POTASSIUM
     Dosage: UNK
  3. QUETIAPINE. [Suspect]
     Active Substance: QUETIAPINE
     Dosage: 25 MG, 1X/DAY +  25MG PRN
     Route: 048
     Dates: start: 20170218, end: 20170220
  4. ESCITALOPRAM [Suspect]
     Active Substance: ESCITALOPRAM OXALATE
     Dosage: 10 MG, 1X/DAY
     Route: 048
  5. CALCIPARINE [Concomitant]
     Active Substance: HEPARIN CALCIUM
     Dosage: UNK
  6. ZIAGEN [Concomitant]
     Active Substance: ABACAVIR SULFATE
     Dosage: UNK
  7. NEXIUM [Concomitant]
     Active Substance: ESOMEPRAZOLE MAGNESIUM
     Dosage: UNK
  8. DAFALGAN [Concomitant]
     Active Substance: ACETAMINOPHEN
     Dosage: UNK
  9. ZOLPIDEM [Concomitant]
     Active Substance: ZOLPIDEM\ZOLPIDEM TARTRATE
     Dosage: UNK
  10. ASPIRIN CARDIO [Concomitant]
     Active Substance: ASPIRIN
     Dosage: UNK
  11. QUANTALAN [Concomitant]
     Active Substance: CHOLESTYRAMINE
     Dosage: UNK
  12. IMODIUM [Concomitant]
     Active Substance: LOPERAMIDE HYDROCHLORIDE
     Dosage: UNK
  13. QUETIAPINE. [Suspect]
     Active Substance: QUETIAPINE
     Dosage: 25 MG, 1X/DAY
     Route: 048
     Dates: end: 20170217
  14. ZEFFIX [Concomitant]
     Active Substance: LAMIVUDINE
     Dosage: UNK
  15. TEMESTA (LORAZEPAM) [Suspect]
     Active Substance: LORAZEPAM
     Dosage: 1 MG, 3X/DAY + 0.5MG 2X/DAY AS NEEDED
     Route: 048
     Dates: start: 2017, end: 20170217
  16. METAMUCIL /00091301/ [Concomitant]
     Active Substance: PSYLLIUM HUSK
     Dosage: UNK
  17. QUETIAPINE. [Suspect]
     Active Substance: QUETIAPINE
     Dosage: 25 MG, 3X/DAY
     Route: 048
     Dates: start: 20170221, end: 20170312
  18. QUETIAPINE. [Suspect]
     Active Substance: QUETIAPINE
     Dosage: 12.5 MG, 1X/DAY
     Route: 048
     Dates: start: 20170313
  19. DEPAKINE CHRONO [Suspect]
     Active Substance: VALPROATE SODIUM
     Dosage: 1000 MG, 2X/DAY
     Route: 048
  20. LAMICTAL [Suspect]
     Active Substance: LAMOTRIGINE
     Dosage: 200 MG, 1X/DAY
  21. INTELENCE [Concomitant]
     Active Substance: ETRAVIRINE
     Dosage: UNK
  22. VI-DE 3 [Concomitant]
     Active Substance: CHOLECALCIFEROL
     Dosage: UNK
  23. BUSCOPAN [Concomitant]
     Active Substance: BUTYLSCOPOLAMINE BROMIDE
     Dosage: UNK

REACTIONS (8)
  - Tremor [Not Recovered/Not Resolved]
  - Psychomotor retardation [Recovered/Resolved]
  - Assisted suicide [Fatal]
  - Malnutrition [Unknown]
  - Somnolence [Recovered/Resolved]
  - Muscle rigidity [Not Recovered/Not Resolved]
  - Condition aggravated [Not Recovered/Not Resolved]
  - Acute kidney injury [Unknown]

NARRATIVE: CASE EVENT DATE: 20170308
